FAERS Safety Report 5123548-3 (Version None)
Quarter: 2006Q4

REPORT INFORMATION
  Report Type: 
  Country: None (occurrence: None)
  Receive Date: 20061010
  Receipt Date: 20060929
  Transmission Date: 20070319
  Serious: Yes (Hospitalization)
  Sender: FDA-Public Use
  Company Number: ES-JNJFOC-20061000139

PATIENT
  Age: 12 Year
  Sex: Female

DRUGS (3)
  1. REMICADE [Suspect]
     Indication: CROHN'S DISEASE
     Dosage: 7 INFUSIONS
     Route: 042
  2. METHYLPREDNISOLONE [Concomitant]
     Route: 065
  3. AZATHIOPRINE [Concomitant]
     Route: 065

REACTIONS (1)
  - CYSTITIS HAEMORRHAGIC [None]
